FAERS Safety Report 11629511 (Version 1)
Quarter: 2015Q4

REPORT INFORMATION
  Report Type: Spontaneous
  Country: US (occurrence: None)
  Receive Date: 20151013
  Receipt Date: 20151013
  Transmission Date: 20160304
  Serious: No
  Sender: FDA-Public Use
  Company Number: None

PATIENT
  Age: 64 Year
  Sex: Female
  Weight: 72.58 kg

DRUGS (9)
  1. PRAVASTATIN [Concomitant]
     Active Substance: PRAVASTATIN\PRAVASTATIN SODIUM
  2. AZOR [Concomitant]
     Active Substance: AMLODIPINE BESYLATE\OLMESARTAN MEDOXOMIL
  3. DEXILANT [Suspect]
     Active Substance: DEXLANSOPRAZOLE
     Indication: NAUSEA
     Route: 048
     Dates: start: 20150924, end: 20150930
  4. CALCIUM [Concomitant]
     Active Substance: CALCIUM
  5. VITAMIN B12 [Concomitant]
     Active Substance: CYANOCOBALAMIN
  6. FENOFIBRATE. [Concomitant]
     Active Substance: FENOFIBRATE
  7. KRILL OIL [Concomitant]
     Active Substance: DIETARY SUPPLEMENT
  8. OMEPRAZOLE. [Concomitant]
     Active Substance: OMEPRAZOLE
  9. LORAZEPAM. [Concomitant]
     Active Substance: LORAZEPAM

REACTIONS (4)
  - Malaise [None]
  - Drug ineffective [None]
  - Nausea [None]
  - Feeling jittery [None]

NARRATIVE: CASE EVENT DATE: 20150924
